FAERS Safety Report 10810936 (Version 1)
Quarter: 2015Q1

REPORT INFORMATION
  Report Type: Spontaneous
  Country: US (occurrence: None)
  Receive Date: 20150212
  Receipt Date: 20150212
  Transmission Date: 20150721
  Serious: Yes (Other)
  Sender: FDA-Public Use
  Company Number: None

PATIENT
  Age: 59 Year
  Sex: Female
  Weight: 63.5 kg

DRUGS (1)
  1. TOPIRAMATE. [Suspect]
     Active Substance: TOPIRAMATE
     Indication: MIGRAINE
     Dosage: 3 X 25MG AT NIGHT
     Route: 048
     Dates: start: 20150119, end: 20150201

REACTIONS (3)
  - Product substitution issue [None]
  - Migraine [None]
  - Product quality issue [None]

NARRATIVE: CASE EVENT DATE: 20150201
